FAERS Safety Report 8615107 (Version 4)
Quarter: 2012Q4

REPORT INFORMATION
  Report Type: Report from Study
  Country: US (occurrence: US)
  Receive Date: 20120614
  Receipt Date: 20121108
  Transmission Date: 20130627
  Serious: Yes (Hospitalization)
  Sender: FDA-Public Use
  Company Number: US-GENZYME-CAMP-1002281

PATIENT
  Age: 35 Year
  Sex: Female
  Weight: 60.59 kg

DRUGS (4)
  1. ALEMTUZUMAB [Suspect]
     Indication: MULTIPLE SCLEROSIS
     Dosage: 12 mg, qd
     Route: 042
     Dates: start: 20111205, end: 20111209
  2. REBIF [Concomitant]
     Indication: MULTIPLE SCLEROSIS
     Dosage: 44 mcg, 3x/w
     Route: 058
     Dates: start: 20090804, end: 20110820
  3. METHYLPREDNISOLONE [Concomitant]
     Indication: MULTIPLE SCLEROSIS
     Dosage: 1.0 g, qd
     Route: 042
     Dates: start: 20111205, end: 20111207
  4. PREVACID [Concomitant]
     Indication: PEPTIC ULCER
     Dosage: 15 mg, prn
     Route: 048
     Dates: start: 201202

REACTIONS (1)
  - Colitis [Recovered/Resolved]
